FAERS Safety Report 12454479 (Version 1)
Quarter: 2016Q2

REPORT INFORMATION
  Report Type: Spontaneous
  Country: US (occurrence: US)
  Receive Date: 20160610
  Receipt Date: 20160610
  Transmission Date: 20160815
  Serious: No
  Sender: FDA-Public Use
  Company Number: US-ASTRAZENECA-2016SE60760

PATIENT
  Age: 25271 Day
  Sex: Male
  Weight: 74.8 kg

DRUGS (1)
  1. RHINOCORT ALLERGY [Suspect]
     Active Substance: BUDESONIDE
     Indication: SEASONAL ALLERGY
     Dosage: 1 PUMP ONE IN EACH NOSTRIL,ONCE/SINGLE ADMINISTRATION
     Route: 045
     Dates: start: 20160524, end: 20160524

REACTIONS (3)
  - Ill-defined disorder [Recovered/Resolved]
  - Prostatic disorder [Recovered/Resolved]
  - Bladder dilatation [Recovered/Resolved]

NARRATIVE: CASE EVENT DATE: 20160524
